FAERS Safety Report 16343308 (Version 4)
Quarter: 2019Q4

REPORT INFORMATION
  Report Type: Report from Study
  Country: US (occurrence: US)
  Receive Date: 20190522
  Receipt Date: 20191009
  Transmission Date: 20200122
  Serious: Yes (Death, Hospitalization, Other)
  Sender: FDA-Public Use
  Company Number: US-ACTELION-A-US2019-184578

PATIENT
  Age: 73 Year
  Sex: Female
  Weight: 47.62 kg

DRUGS (3)
  1. TRACLEER [Suspect]
     Active Substance: BOSENTAN
     Indication: PULMONARY ARTERIAL HYPERTENSION
     Dosage: 125 MG, BID
     Route: 048
  2. AMLODIPINE [Concomitant]
     Active Substance: AMLODIPINE BESYLATE
  3. WARFARIN [Concomitant]
     Active Substance: WARFARIN

REACTIONS (10)
  - Peripheral swelling [Unknown]
  - Skin infection [Unknown]
  - Hepatic cirrhosis [Unknown]
  - Cataract [Unknown]
  - Gastrointestinal haemorrhage [Unknown]
  - Eye infection [Unknown]
  - Oedema [Recovering/Resolving]
  - Death [Fatal]
  - Rash erythematous [Unknown]
  - Hernia [Unknown]

NARRATIVE: CASE EVENT DATE: 20190926
